FAERS Safety Report 8013110-7 (Version None)
Quarter: 2011Q4

REPORT INFORMATION
  Report Type: 
  Country: None (occurrence: None)
  Receive Date: 20111229
  Receipt Date: 20111228
  Transmission Date: 20120403
  Serious: Yes (Other)
  Sender: FDA-Public Use
  Company Number: UA-JNJFOC-20111212112

PATIENT

DRUGS (1)
  1. NICORETTE [Suspect]
     Indication: SMOKING CESSATION THERAPY
     Dosage: MORE THAN ONE YEAR
     Route: 048
     Dates: start: 20100101

REACTIONS (2)
  - DEPENDENCE [None]
  - INTENTIONAL DRUG MISUSE [None]
